FAERS Safety Report 24734940 (Version 5)
Quarter: 2025Q3

REPORT INFORMATION
  Report Type: Spontaneous
  Country: US (occurrence: US)
  Receive Date: 20241215
  Receipt Date: 20250825
  Transmission Date: 20251021
  Serious: No
  Sender: ROCHE
  Company Number: US-ROCHE-10000152540

PATIENT
  Age: 36 Year
  Sex: Female
  Weight: 86.18 kg

DRUGS (7)
  1. OCREVUS [Suspect]
     Active Substance: OCRELIZUMAB
     Indication: Relapsing-remitting multiple sclerosis
     Route: 042
     Dates: start: 20180201, end: 202410
  2. AVONEX [Concomitant]
     Active Substance: INTERFERON BETA-1A
  3. TYSABRI [Concomitant]
     Active Substance: NATALIZUMAB
  4. TECFIDERA [Concomitant]
     Active Substance: DIMETHYL FUMARATE
  5. VITAMIN D [Concomitant]
     Active Substance: VITAMIN D NOS
     Dates: start: 2017
  6. VITAMINS [Concomitant]
     Active Substance: VITAMINS
     Dates: start: 202404
  7. VITAMIN C [Concomitant]
     Active Substance: ASCORBIC ACID
     Dates: start: 2017

REACTIONS (4)
  - Maternal exposure before pregnancy [Unknown]
  - Maternal exposure during pregnancy [Unknown]
  - No adverse event [Unknown]
  - Maternal exposure during breast feeding [Unknown]
